FAERS Safety Report 10418115 (Version 1)
Quarter: 2014Q2

REPORT INFORMATION
  Report Type: Spontaneous
  Country: US (occurrence: None)
  Receive Date: 20140609
  Receipt Date: 20140609
  Transmission Date: 20141212
  Serious: No
  Sender: FDA-Public Use
  Company Number: 2014TUS002494

PATIENT
  Age: 56 Year
  Sex: Male

DRUGS (1)
  1. BRINTELLIX (VORTIOXETINE) TABLET [Suspect]

REACTIONS (2)
  - Tremor [None]
  - Dry mouth [None]
